FAERS Safety Report 5600639-1 (Version None)
Quarter: 2008Q1

REPORT INFORMATION
  Report Type: 
  Country: None (occurrence: None)
  Receive Date: 20080123
  Receipt Date: 20080114
  Transmission Date: 20080703
  Serious: Yes (Other)
  Sender: FDA-Public Use
  Company Number: GB-ELI_LILLY_AND_COMPANY-GB200710002808

PATIENT
  Age: 48 Year
  Sex: Male
  Weight: 149 kg

DRUGS (12)
  1. BYETTA [Suspect]
     Indication: DIABETES MELLITUS
     Dosage: 5 UG, 2/D
     Route: 058
     Dates: start: 20070824
  2. AMLODIPINE [Concomitant]
  3. CIPRAMIL [Concomitant]
  4. ASPIRIN [Concomitant]
     Dosage: 75 MG, QOD
     Route: 065
  5. METFORMIN HCL [Concomitant]
     Dosage: 850 MG, QOD
     Route: 048
  6. BISOPROLOL FUMARATE [Concomitant]
     Dosage: 10 MG, UNKNOWN
     Route: 048
  7. ROSUVASTATIN [Concomitant]
  8. OMEPRAZOLE [Concomitant]
     Dosage: UNK, UNKNOWN
     Route: 065
  9. BEZAFIBRATE [Concomitant]
     Dosage: UNK, UNKNOWN
     Route: 065
  10. XENICAL [Concomitant]
     Dosage: UNK, UNKNOWN
     Route: 065
  11. CO-AMILOFRUSE [Concomitant]
     Dosage: UNK, UNKNOWN
     Route: 065
  12. PERINDOPRIL [Concomitant]
     Dosage: 8 MG, QOD
     Route: 048

REACTIONS (4)
  - COLITIS [None]
  - CONSTIPATION [None]
  - NAUSEA [None]
  - RECTAL HAEMORRHAGE [None]
